FAERS Safety Report 6566861-5 (Version None)
Quarter: 2010Q1

REPORT INFORMATION
  Report Type: 
  Country: None (occurrence: None)
  Receive Date: 20100202
  Receipt Date: 20100125
  Transmission Date: 20100710
  Serious: Yes (Hospitalization)
  Sender: FDA-Public Use
  Company Number: B0628843A

PATIENT
  Sex: Female

DRUGS (4)
  1. DEROXAT [Suspect]
     Indication: MAJOR DEPRESSION
     Dosage: 20MG PER DAY
     Route: 048
     Dates: start: 20080301, end: 20080315
  2. LASILIX FAIBLE [Suspect]
     Dosage: 20MG PER DAY
     Route: 048
     Dates: end: 20080315
  3. APROVEL [Concomitant]
     Dosage: 75MG PER DAY
     Route: 048
     Dates: end: 20080315
  4. SERESTA [Concomitant]
     Indication: ANXIETY
     Dosage: 10MG TWICE PER DAY
     Route: 048

REACTIONS (9)
  - AGITATION [None]
  - ANXIETY [None]
  - CONFUSIONAL STATE [None]
  - DISORIENTATION [None]
  - FALL [None]
  - HYPONATRAEMIA [None]
  - INAPPROPRIATE ANTIDIURETIC HORMONE SECRETION [None]
  - INCOHERENT [None]
  - THROMBOCYTOSIS [None]
